FAERS Safety Report 5274453-3 (Version None)
Quarter: 2007Q1

REPORT INFORMATION
  Report Type: 
  Country: None (occurrence: None)
  Receive Date: 20070323
  Receipt Date: 20070312
  Transmission Date: 20070707
  Serious: Yes (Other)
  Sender: FDA-Public Use
  Company Number: US-PFIZER INC-2007019328

PATIENT
  Sex: Female
  Weight: 92.1 kg

DRUGS (3)
  1. BEXTRA [Suspect]
  2. SYNTHROID [Concomitant]
  3. PRILOSEC [Concomitant]

REACTIONS (2)
  - HYPERSENSITIVITY [None]
  - URTICARIA [None]
